FAERS Safety Report 13957418 (Version 1)
Quarter: 2017Q3

REPORT INFORMATION
  Report Type: Spontaneous
  Country: US (occurrence: US)
  Receive Date: 20170912
  Receipt Date: 20170912
  Transmission Date: 20171128
  Serious: Yes (Other)
  Sender: FDA-Public Use
  Company Number: US-STRIDES ARCOLAB LIMITED-2017SP011528

PATIENT

DRUGS (7)
  1. GALANTAMINE. [Suspect]
     Active Substance: GALANTAMINE
     Indication: MEMORY IMPAIRMENT
     Dosage: UNK (INCREASED DOSE)
     Route: 065
  2. PROVIGIL [Concomitant]
     Active Substance: MODAFINIL
     Indication: AGITATION
     Dosage: UNK (DURING THE DAY)
     Route: 065
  3. GALANTAMINE. [Suspect]
     Active Substance: GALANTAMINE
     Indication: DEMENTIA
     Dosage: UNK
     Route: 065
  4. PROVIGIL [Concomitant]
     Active Substance: MODAFINIL
     Indication: CIRCADIAN RHYTHM SLEEP DISORDER
  5. TRAZODONE [Concomitant]
     Active Substance: TRAZODONE HYDROCHLORIDE
     Indication: SLEEP DISORDER
     Dosage: UNK (AT NIGHT)
     Route: 065
  6. AMANTADINE HYDROCHLORIDE. [Suspect]
     Active Substance: AMANTADINE HYDROCHLORIDE
     Indication: AGITATION
     Dosage: UNK (DURING THE DAY)
     Route: 065
  7. AMANTADINE HYDROCHLORIDE. [Suspect]
     Active Substance: AMANTADINE HYDROCHLORIDE
     Indication: CIRCADIAN RHYTHM SLEEP DISORDER

REACTIONS (7)
  - Cogwheel rigidity [Unknown]
  - Drug withdrawal syndrome [Unknown]
  - Off label use [Unknown]
  - Mental status changes [Unknown]
  - Hallucination, visual [Unknown]
  - Extrapyramidal disorder [Unknown]
  - Tremor [Unknown]
